FAERS Safety Report 15387156 (Version 1)
Quarter: 2018Q3

REPORT INFORMATION
  Report Type: Spontaneous
  Country: US (occurrence: US)
  Receive Date: 20180914
  Receipt Date: 20180914
  Transmission Date: 20181010
  Serious: Yes (Other)
  Sender: FDA-Public Use
  Company Number: US-AMGEN-USASP2018127131

PATIENT
  Age: 79 Year
  Sex: Female

DRUGS (2)
  1. PREDNISONE. [Concomitant]
     Active Substance: PREDNISONE
     Dosage: UNK
  2. ENBREL [Suspect]
     Active Substance: ETANERCEPT
     Indication: RHEUMATOID ARTHRITIS
     Dosage: UNK, QWK
     Route: 065
     Dates: start: 2009

REACTIONS (11)
  - Inappropriate schedule of drug administration [Unknown]
  - Fatigue [Unknown]
  - Dental prosthesis placement [Unknown]
  - Underdose [Unknown]
  - Malaise [Unknown]
  - Surgery [Unknown]
  - Mobility decreased [Unknown]
  - Injection site pain [Unknown]
  - Accidental exposure to product [Unknown]
  - Rheumatoid arthritis [Unknown]
  - Infection [Unknown]

NARRATIVE: CASE EVENT DATE: 201808
